FAERS Safety Report 6715520-4 (Version None)
Quarter: 2010Q2

REPORT INFORMATION
  Report Type: 
  Country: None (occurrence: None)
  Receive Date: 20100507
  Receipt Date: 20100429
  Transmission Date: 20101027
  Serious: Yes (Death, Hospitalization)
  Sender: FDA-Public Use
  Company Number: GB-PURDUE-GBR-2010-0006502

PATIENT
  Age: 46 Year
  Sex: Male

DRUGS (8)
  1. MORPHINE SULFATE CR CAPSULE DAILY 90MG [Suspect]
     Indication: PAIN
     Dosage: 90 MG, BID
  2. DEXAMETHASONE [Suspect]
     Indication: FATIGUE
     Dosage: 4 MG, DAILY
     Route: 048
  3. DEXAMETHASONE [Suspect]
     Indication: ROUTINE HEALTH MAINTENANCE
     Dosage: 2 MG, DAILY
  4. CARBOPLATIN [Suspect]
     Indication: CHEMOTHERAPY
  5. MOVICOL                            /01053601/ [Suspect]
     Indication: CONSTIPATION
     Dosage: 6 SACHET, DAILY
  6. NAPROXEN [Suspect]
     Indication: PAIN
     Dosage: 500 MG, BID
  7. WARFARIN [Suspect]
     Indication: DEEP VEIN THROMBOSIS
  8. WARFARIN [Suspect]
     Indication: PULMONARY EMBOLISM

REACTIONS (11)
  - ABDOMINAL PAIN [None]
  - ADRENAL HAEMORRHAGE [None]
  - ADRENAL INSUFFICIENCY [None]
  - ASTHENIA [None]
  - CONSTIPATION [None]
  - DEATH [None]
  - GENERAL PHYSICAL HEALTH DETERIORATION [None]
  - HYPERHIDROSIS [None]
  - HYPERKALAEMIA [None]
  - HYPONATRAEMIA [None]
  - LETHARGY [None]
